FAERS Safety Report 20900218 (Version 1)
Quarter: 2022Q2

REPORT INFORMATION
  Report Type: Spontaneous
  Country: MT (occurrence: MT)
  Receive Date: 20220601
  Receipt Date: 20220601
  Transmission Date: 20220720
  Serious: Yes (Other)
  Sender: FDA-Public Use
  Company Number: MT-Indoco-000310

PATIENT
  Age: 82 Year
  Sex: Female

DRUGS (1)
  1. OLANZAPINE [Suspect]
     Active Substance: OLANZAPINE
     Indication: Dementia
     Dosage: AT NIGHT

REACTIONS (2)
  - Hypothermia [Recovered/Resolved]
  - Oedema peripheral [Recovered/Resolved]
